FAERS Safety Report 12471465 (Version 3)
Quarter: 2016Q4

REPORT INFORMATION
  Report Type: Spontaneous
  Country: US (occurrence: US)
  Receive Date: 20160616
  Receipt Date: 20161116
  Transmission Date: 20170207
  Serious: No
  Sender: FDA-Public Use
  Company Number: US-GLAXOSMITHKLINE-US2016081877

PATIENT
  Sex: Female

DRUGS (4)
  1. MELATONIN [Concomitant]
     Active Substance: MELATONIN
  2. MUCOMYST NEBULISER SOLUTION [Concomitant]
  3. ALBUTEROL INHALATION POWDER [Concomitant]
     Active Substance: ALBUTEROL
  4. ANORO ELLIPTA [Suspect]
     Active Substance: UMECLIDINIUM BROMIDE\VILANTEROL TRIFENATATE
     Indication: CHRONIC OBSTRUCTIVE PULMONARY DISEASE

REACTIONS (1)
  - Respiratory tract congestion [Unknown]
